FAERS Safety Report 7027309-X (Version None)
Quarter: 2010Q4

REPORT INFORMATION
  Report Type: 
  Country: None (occurrence: None)
  Receive Date: 20101004
  Receipt Date: 20100928
  Transmission Date: 20110411
  Serious: Yes (Other)
  Sender: FDA-Public Use
  Company Number: CHPA2010US15358

PATIENT
  Age: 87 Year
  Sex: Female

DRUGS (3)
  1. ASPIRIN [Suspect]
     Indication: NECK PAIN
     Dosage: 1 DF, QD
     Route: 048
     Dates: end: 20100927
  2. ASPIRIN [Suspect]
     Indication: HEADACHE
  3. ASPIRIN [Suspect]
     Indication: INSOMNIA

REACTIONS (4)
  - DRUG DEPENDENCE [None]
  - INTENTIONAL DRUG MISUSE [None]
  - OFF LABEL USE [None]
  - TRANSIENT ISCHAEMIC ATTACK [None]
